FAERS Safety Report 8293993-6 (Version None)
Quarter: 2012Q2

REPORT INFORMATION
  Report Type: 
  Country: None (occurrence: None)
  Receive Date: 20120413
  Receipt Date: 20120413
  Transmission Date: 20120825
  Serious: No
  Sender: FDA-Public Use
  Company Number: None

PATIENT
  Sex: Male
  Weight: 34.4734 kg

DRUGS (2)
  1. RITALIN LA [Suspect]
  2. RITALIN LA [Suspect]

REACTIONS (3)
  - ABDOMINAL DISCOMFORT [None]
  - ABNORMAL BEHAVIOUR [None]
  - OPPOSITIONAL DEFIANT DISORDER [None]
